FAERS Safety Report 10686137 (Version 2)
Quarter: 2015Q1

REPORT INFORMATION
  Report Type: Spontaneous
  Country: US (occurrence: US)
  Receive Date: 20141231
  Receipt Date: 20150124
  Transmission Date: 20150720
  Serious: No
  Sender: FDA-Public Use
  Company Number: US-B.I. PHARMACEUTICALS,INC./RIDGEFIELD-2014-BI-61706BP

PATIENT
  Age: 82 Year
  Sex: Female
  Weight: 77.11 kg

DRUGS (3)
  1. SPIRIVA [Suspect]
     Active Substance: TIOTROPIUM BROMIDE MONOHYDRATE
     Indication: EMPHYSEMA
     Dosage: 18 MCG
     Route: 055
     Dates: start: 2004
  2. METFORMIN [Concomitant]
     Active Substance: METFORMIN HYDROCHLORIDE
     Indication: DIABETES MELLITUS
     Dosage: 500 MG
     Route: 048
  3. ADVAIR DISCUS [Concomitant]
     Indication: EMPHYSEMA
     Dosage: FORMULATION: INHALATION SPRAY
     Route: 055

REACTIONS (5)
  - Vision blurred [Not Recovered/Not Resolved]
  - Cataract [Recovered/Resolved]
  - Cataract [Not Recovered/Not Resolved]
  - Dry throat [Not Recovered/Not Resolved]
  - Product quality issue [Unknown]

NARRATIVE: CASE EVENT DATE: 2007
